FAERS Safety Report 8490368-1 (Version None)
Quarter: 2012Q3

REPORT INFORMATION
  Report Type: 
  Country: None (occurrence: None)
  Receive Date: 20120705
  Receipt Date: 20120622
  Transmission Date: 20120928
  Serious: Yes (Other)
  Sender: FDA-Public Use
  Company Number: GB-VALEANT-2012VX002925

PATIENT
  Age: 71 Year
  Sex: Male

DRUGS (4)
  1. TIMOLOL MALEATE [Suspect]
     Indication: OCULAR HYPERTENSION
     Route: 047
     Dates: start: 20080101
  2. AZARGA [Suspect]
     Indication: OCULAR HYPERTENSION
     Route: 047
  3. TRAVOPROST AND TIMOLOL [Suspect]
     Indication: OCULAR HYPERTENSION
     Route: 047
  4. PRED FORTE [Suspect]
     Indication: UVEITIS
     Route: 047
     Dates: start: 20110401

REACTIONS (6)
  - DRUG INEFFECTIVE [None]
  - CONDITION AGGRAVATED [None]
  - INTRAOCULAR PRESSURE INCREASED [None]
  - UVEITIS [None]
  - INTRAOCULAR PRESSURE FLUCTUATION [None]
  - OPTIC NERVE CUPPING [None]
